FAERS Safety Report 8702057 (Version 2)
Quarter: 2012Q4

REPORT INFORMATION
  Report Type: Report from Study
  Country: US (occurrence: US)
  Receive Date: 20120803
  Receipt Date: 20120829
  Transmission Date: 20130627
  Serious: Yes (Death, Disabling, Other)
  Sender: FDA-Public Use
  Company Number: US-ASTELLAS-2012US006068

PATIENT
  Age: 68 None
  Sex: Male

DRUGS (1)
  1. ERLOTINIB TABLET [Suspect]
     Indication: LUNG CARCINOMA CELL TYPE UNSPECIFIED STAGE 0
     Dosage: 150 mg, UID/QD
     Route: 048
     Dates: start: 20120626, end: 20120720

REACTIONS (3)
  - Malignant neoplasm progression [Fatal]
  - Muscular weakness [Not Recovered/Not Resolved]
  - Rash [Recovering/Resolving]
